FAERS Safety Report 5166120-1 (Version None)
Quarter: 2006Q4

REPORT INFORMATION
  Report Type: 
  Country: None (occurrence: None)
  Receive Date: 20061129
  Receipt Date: 20061115
  Transmission Date: 20070319
  Serious: Yes (Hospitalization, Other)
  Sender: FDA-Public Use
  Company Number: US-2006-023295

PATIENT
  Age: 32 Year
  Sex: Female

DRUGS (1)
  1. BETASERON [Suspect]
     Indication: MULTIPLE SCLEROSIS
     Dosage: 8 MIU, EVERY 2D, SUBCUTANEOUS
     Route: 058
     Dates: start: 20051114

REACTIONS (12)
  - ABDOMINAL PAIN [None]
  - BLOOD POTASSIUM DECREASED [None]
  - CONSTIPATION [None]
  - CYSTITIS [None]
  - EXTREMITY CONTRACTURE [None]
  - GALLBLADDER DISORDER [None]
  - HYPOTENSION [None]
  - INCOHERENT [None]
  - INJECTION SITE BRUISING [None]
  - INJECTION SITE HAEMORRHAGE [None]
  - MIGRAINE [None]
  - PROGRESSIVE MULTIPLE SCLEROSIS [None]
